FAERS Safety Report 9203829 (Version 5)
Quarter: 2014Q1

REPORT INFORMATION
  Report Type: Spontaneous
  Country: US (occurrence: US)
  Receive Date: 20130402
  Receipt Date: 20140124
  Transmission Date: 20141002
  Serious: Yes (Hospitalization, Other)
  Sender: FDA-Public Use
  Company Number: US-PFIZER INC-2013101716

PATIENT
  Age: 57 Year
  Sex: Female
  Weight: 77.1 kg

DRUGS (12)
  1. LYRICA [Suspect]
     Indication: NECK PAIN
     Dosage: 50 MG, 2X/DAY
     Route: 048
  2. LYRICA [Suspect]
     Indication: PAIN IN EXTREMITY
     Dosage: 75 MG, 2X/DAY
     Route: 048
  3. LYRICA [Suspect]
     Indication: PAIN
     Dosage: 100 MG, 2X/DAY
     Route: 048
  4. LYRICA [Suspect]
     Indication: FIBROMYALGIA
     Dosage: 75 MG, 2X/DAY
     Route: 048
  5. LYRICA [Suspect]
     Dosage: 50 MG, 2X/DAY
     Route: 048
  6. LYRICA [Suspect]
     Dosage: 75 MG, UNK
     Route: 048
  7. CYMBALTA [Concomitant]
     Dosage: UNK
  8. ATARAX [Concomitant]
     Indication: NECK PAIN
     Dosage: UNK
  9. ATARAX [Concomitant]
     Indication: BACK PAIN
  10. ZANAFLEX [Concomitant]
     Indication: MUSCLE DISORDER
     Dosage: UNK
  11. TIZANIDINE [Concomitant]
     Dosage: UNK
  12. TRAMADOL [Concomitant]
     Dosage: UNK

REACTIONS (11)
  - Cerebral haemorrhage [Unknown]
  - Gastric neoplasm [Unknown]
  - Incision site haemorrhage [Unknown]
  - Road traffic accident [Unknown]
  - Abdominal mass [Unknown]
  - Fluid retention [Unknown]
  - Swelling [Unknown]
  - Oedema peripheral [Unknown]
  - Weight increased [Unknown]
  - Tremor [Unknown]
  - Drug ineffective [Unknown]
